FAERS Safety Report 9650545 (Version 3)
Quarter: 2013Q4

REPORT INFORMATION
  Report Type: Spontaneous
  Country: US (occurrence: US)
  Receive Date: 20131029
  Receipt Date: 20131206
  Transmission Date: 20140711
  Serious: Yes (Death, Other)
  Sender: FDA-Public Use
  Company Number: US-BIOGENIDEC-2013BI101691

PATIENT
  Sex: Female

DRUGS (8)
  1. TYSABRI [Suspect]
     Indication: MULTIPLE SCLEROSIS
     Route: 042
     Dates: start: 20120328, end: 20130730
  2. TEGRETOL [Concomitant]
  3. NEURONTIN [Concomitant]
  4. VALIUM [Concomitant]
  5. EFFEXOR [Concomitant]
  6. VERAPAMIL XL [Concomitant]
  7. TRAMADOL [Concomitant]
  8. LORTAB [Concomitant]

REACTIONS (2)
  - Small cell carcinoma [Unknown]
  - Death [Fatal]
